FAERS Safety Report 21656408 (Version 2)
Quarter: 2022Q4

REPORT INFORMATION
  Report Type: Spontaneous
  Country: NO (occurrence: NO)
  Receive Date: 20221129
  Receipt Date: 20221210
  Transmission Date: 20230113
  Serious: Yes (Other)
  Sender: FDA-Public Use
  Company Number: NO-TEVA-2022-NO-2831635

PATIENT
  Age: 40 Year
  Sex: Male
  Weight: 120 kg

DRUGS (3)
  1. OLANZAPINE [Suspect]
     Active Substance: OLANZAPINE
     Indication: Sleep disorder
     Route: 065
  2. ZYPREXA [Suspect]
     Active Substance: OLANZAPINE
     Indication: Sleep disorder
     Dosage: 25 MILLIGRAM DAILY;
     Route: 065
  3. ZYPREXA [Suspect]
     Active Substance: OLANZAPINE
     Route: 065

REACTIONS (1)
  - Drug dependence [Unknown]
